FAERS Safety Report 24012502 (Version 1)
Quarter: 2024Q2

REPORT INFORMATION
  Report Type: Spontaneous
  Country: BR (occurrence: BR)
  Receive Date: 20240626
  Receipt Date: 20240626
  Transmission Date: 20240716
  Serious: Yes (Hospitalization)
  Sender: FDA-Public Use
  Company Number: BR-ViiV Healthcare Limited-BR2024AMR078232

PATIENT

DRUGS (4)
  1. DOVATO [Suspect]
     Active Substance: DOLUTEGRAVIR SODIUM\LAMIVUDINE
     Indication: Product used for unknown indication
     Dosage: UNK
     Dates: start: 20240425
  2. DOLUTEGRAVIR [Concomitant]
     Active Substance: DOLUTEGRAVIR
     Indication: Product used for unknown indication
     Dosage: 1 DF
  3. TENOFOVIR DISOPROXIL FUMARATE + LAMIVUDINE [Concomitant]
     Indication: Product used for unknown indication
     Dosage: 2 DF
     Dates: end: 202403
  4. LAMIVUDINE [Concomitant]
     Active Substance: LAMIVUDINE
     Indication: Product used for unknown indication
     Dosage: 2 DF
     Dates: start: 202403, end: 202404

REACTIONS (4)
  - Diarrhoea [Recovered/Resolved]
  - Faeces soft [Unknown]
  - Vomiting [Recovered/Resolved]
  - Dehydration [Unknown]

NARRATIVE: CASE EVENT DATE: 20240425
